FAERS Safety Report 9189338 (Version 9)
Quarter: 2013Q4

REPORT INFORMATION
  Report Type: Report from Study
  Country: AT (occurrence: AT)
  Receive Date: 20130326
  Receipt Date: 20131126
  Transmission Date: 20140711
  Serious: Yes (Hospitalization)
  Sender: FDA-Public Use
  Company Number: PHHO2013AT004119

PATIENT
  Sex: 0

DRUGS (7)
  1. ACZ885 [Suspect]
     Indication: JUVENILE IDIOPATHIC ARTHRITIS
     Dosage: 4 MG/KG, EVERY 4 WEEKS
     Route: 058
     Dates: start: 20121109, end: 20131010
  2. PREDNISOLONE [Concomitant]
     Indication: ANTIINFLAMMATORY THERAPY
     Dosage: 2.5 MG,/48 HRS
     Dates: start: 20120511, end: 20131025
  3. METHOTREXATE [Concomitant]
     Indication: RHEUMATIC DISORDER
     Dosage: 12.5 MG,/WEEK
     Dates: start: 201208
  4. OSPEN [Concomitant]
     Indication: ANTIBIOTIC THERAPY
     Dosage: UNK
     Dates: start: 20131023, end: 20131025
  5. TAMIFLU [Concomitant]
     Indication: ANTIVIRAL TREATMENT
     Dosage: 600 MG, BID
     Dates: start: 20130315
  6. AUGMENTIN [Concomitant]
     Indication: ANTIBIOTIC THERAPY
     Dosage: 457 MG, TID
     Dates: start: 20130315, end: 20130318
  7. AUGMENTIN [Concomitant]
     Dosage: 3X1, 1 G/DAY
     Dates: start: 20131025

REACTIONS (3)
  - Juvenile idiopathic arthritis [Recovered/Resolved]
  - Sepsis [Recovered/Resolved]
  - Haemorrhage [Recovered/Resolved]
